FAERS Safety Report 22205206 (Version 1)
Quarter: 2023Q2

REPORT INFORMATION
  Report Type: Report from Study
  Country: US (occurrence: US)
  Receive Date: 20230413
  Receipt Date: 20230413
  Transmission Date: 20230721
  Serious: Yes (Hospitalization)
  Sender: FDA-Public Use
  Company Number: US-ABBVIE-4725988

PATIENT
  Age: 71 Year
  Sex: Female

DRUGS (1)
  1. RINVOQ [Suspect]
     Active Substance: UPADACITINIB
     Indication: Rheumatoid arthritis
     Route: 048
     Dates: start: 20211124

REACTIONS (4)
  - Animal attack [Recovering/Resolving]
  - Spinal fracture [Unknown]
  - Infection [Unknown]
  - Coma [Unknown]

NARRATIVE: CASE EVENT DATE: 20221201
